FAERS Safety Report 6048450-4 (Version None)
Quarter: 2009Q1

REPORT INFORMATION
  Report Type: 
  Country: None (occurrence: None)
  Receive Date: 20090123
  Receipt Date: 20090116
  Transmission Date: 20090719
  Serious: Yes (Other)
  Sender: FDA-Public Use
  Company Number: A0764666A

PATIENT
  Age: 62 Year
  Sex: Female
  Weight: 70.9 kg

DRUGS (1)
  1. AVANDIA [Suspect]
     Dosage: 4MG PER DAY
     Route: 048
     Dates: start: 20010101, end: 20070601

REACTIONS (2)
  - HEART INJURY [None]
  - PAIN [None]
